FAERS Safety Report 4270828-X (Version None)
Quarter: 2004Q1

REPORT INFORMATION
  Report Type: 
  Country: None (occurrence: None)
  Receive Date: 20040113
  Receipt Date: 20040105
  Transmission Date: 20041129
  Serious: Yes (Death)
  Sender: FDA-Public Use
  Company Number: 2003187065GB

PATIENT
  Age: 82 Year
  Sex: Female
  Weight: 98 kg

DRUGS (9)
  1. CELEBREX(CALECOXIB) CAPSULE [Suspect]
     Indication: RHEUMATOID ARTHRITIS
     Dosage: 100 MG, BID, ORAL
     Route: 048
     Dates: start: 20030731
  2. HYDROXYCHLOROQUINE SULFATE [Suspect]
     Indication: RHEUMATOID ARTHRITIS
     Dosage: 200 MG, QD, ORAL
     Route: 048
     Dates: start: 20030731
  3. TAMOFEN [Concomitant]
  4. FOSAMAX [Concomitant]
  5. LANSOPRAZOLE [Concomitant]
  6. WARFARIN SODIUM [Concomitant]
  7. CALCICHEW [Concomitant]
  8. FRUSEMIDE [Concomitant]
  9. CO-PROXAMOL (DEXTROPROPOXYPHENE HYDROCHLORIDE) [Concomitant]

REACTIONS (3)
  - HEPATIC HAEMORRHAGE [None]
  - HEPATIC STEATOSIS [None]
  - INTERNATIONAL NORMALISED RATIO INCREASED [None]
